FAERS Safety Report 9182264 (Version 2)
Quarter: 2013Q2

REPORT INFORMATION
  Report Type: Spontaneous
  Country: US (occurrence: US)
  Receive Date: 20130322
  Receipt Date: 20130418
  Transmission Date: 20140414
  Serious: Yes (Other)
  Sender: FDA-Public Use
  Company Number: US-PFIZER INC-2013091049

PATIENT
  Age: 80 Year
  Sex: Male
  Weight: 68.48 kg

DRUGS (9)
  1. ZYVOX [Suspect]
     Indication: OSTEOMYELITIS
     Dosage: 600 MG, 2X/DAY
     Route: 048
     Dates: start: 20130221, end: 201303
  2. FUROSEMIDE [Concomitant]
     Dosage: 80 MG, UNK
     Dates: start: 20130221
  3. OMEPRAZOLE [Concomitant]
     Dosage: 20 MG, UNK
     Dates: start: 20130221
  4. FLOMAX [Concomitant]
     Dosage: 0.4 MG, UNK
     Dates: start: 20130221
  5. ALLOPURINOL [Concomitant]
     Dosage: 300 MG, UNK
     Dates: start: 20130221
  6. ATENOLOL [Concomitant]
     Dosage: 25 MG, UNK
     Dates: start: 20130221
  7. SIMVASTATIN [Concomitant]
     Dosage: 10 MG, UNK
     Dates: start: 20130221
  8. KLOR-CON [Concomitant]
     Dosage: 20 MEQ, UNK
     Dates: start: 20130221
  9. CALCIUM [Concomitant]
     Dosage: UNK
     Dates: start: 20130221

REACTIONS (3)
  - Haemorrhage [Recovered/Resolved]
  - Platelet count decreased [Unknown]
  - Haemoglobin decreased [Unknown]
